FAERS Safety Report 22050147 (Version 3)
Quarter: 2025Q1

REPORT INFORMATION
  Report Type: Spontaneous
  Country: US (occurrence: US)
  Receive Date: 20230301
  Receipt Date: 20250113
  Transmission Date: 20250409
  Serious: Yes (Hospitalization)
  Sender: SANOFI AVENTIS
  Company Number: US-SA-SAC20230228000967

PATIENT
  Age: 31 Year
  Sex: Female

DRUGS (6)
  1. DUPIXENT [Suspect]
     Active Substance: DUPILUMAB
     Indication: Dermatitis atopic
     Dosage: 300 MG, QOW
     Route: 058
     Dates: start: 20230125
  2. DUPIXENT [Suspect]
     Active Substance: DUPILUMAB
     Indication: Dermatitis contact
  3. REMODULIN [Suspect]
     Active Substance: TREPROSTINIL
     Dates: start: 202307
  4. REMODULIN [Suspect]
     Active Substance: TREPROSTINIL
  5. OPSUMIT [Concomitant]
     Active Substance: MACITENTAN
  6. ADALIMUMAB-ADAZ [Concomitant]
     Active Substance: ADALIMUMAB-ADAZ

REACTIONS (6)
  - Hospitalisation [Unknown]
  - Pain in jaw [Unknown]
  - Nausea [Unknown]
  - Vomiting [Unknown]
  - Injection site pain [Unknown]
  - Product use in unapproved indication [Unknown]

NARRATIVE: CASE EVENT DATE: 20230125
